FAERS Safety Report 23092087 (Version 2)
Quarter: 2024Q2

REPORT INFORMATION
  Report Type: Spontaneous
  Country: US (occurrence: US)
  Receive Date: 20231021
  Receipt Date: 20240627
  Transmission Date: 20240716
  Serious: No
  Sender: FDA-Public Use
  Company Number: US-SA-SAC20231016001554

PATIENT
  Age: 29 Year
  Sex: Female

DRUGS (28)
  1. DUPIXENT [Suspect]
     Active Substance: DUPILUMAB
     Indication: Dermatitis atopic
     Dosage: 600 MG, 1X
     Route: 058
     Dates: start: 202309, end: 202309
  2. DUPIXENT [Suspect]
     Active Substance: DUPILUMAB
     Indication: Eczema
     Dosage: 300 MG, QOW
     Route: 058
     Dates: start: 2023, end: 2023
  3. DUPIXENT [Suspect]
     Active Substance: DUPILUMAB
     Dosage: 300 MG, QOW
     Route: 058
     Dates: start: 20240619
  4. ESOMEPRAZOLE [Concomitant]
     Active Substance: ESOMEPRAZOLE
  5. AZITHROMYCIN [Concomitant]
     Active Substance: AZITHROMYCIN
  6. BENZONATATE [Concomitant]
     Active Substance: BENZONATATE
  7. BOTOX [Concomitant]
     Active Substance: BOTULINUM TOXIN TYPE A\ONABOTULINUMTOXINA
  8. CLONAZEPAM [Concomitant]
     Active Substance: CLONAZEPAM
  9. FLUCONAZOLE [Concomitant]
     Active Substance: FLUCONAZOLE
  10. CODEINE [Concomitant]
     Active Substance: CODEINE
  11. HYOSCYAMINE [Concomitant]
     Active Substance: HYOSCYAMINE
  12. IPRATROPIUM [Concomitant]
     Active Substance: IPRATROPIUM
  13. ITRACONAZOLE [Concomitant]
     Active Substance: ITRACONAZOLE
  14. LAMOTRIGINE [Concomitant]
     Active Substance: LAMOTRIGINE
  15. LORATADINE [Concomitant]
     Active Substance: LORATADINE
  16. NAPROXEN [Concomitant]
     Active Substance: NAPROXEN
  17. ONDANSETRON [Concomitant]
     Active Substance: ONDANSETRON
  18. PREDNISONE [Concomitant]
     Active Substance: PREDNISONE
  19. PROMETHAZINE [Concomitant]
     Active Substance: PROMETHAZINE HYDROCHLORIDE
  20. RINVOQ [Concomitant]
     Active Substance: UPADACITINIB
  21. RIZATRIPTAN [Concomitant]
     Active Substance: RIZATRIPTAN
  22. TIZANIDINE [Concomitant]
     Active Substance: TIZANIDINE
  23. TRAMADOL HCL [Concomitant]
     Active Substance: TRAMADOL HYDROCHLORIDE
  24. UBRELVY [Concomitant]
     Active Substance: UBROGEPANT
  25. ZOLPIDEM [Concomitant]
     Active Substance: ZOLPIDEM TARTRATE
  26. BENZONATATE [Concomitant]
     Active Substance: BENZONATATE
  27. METHYLPREDNISOLONE [Concomitant]
     Active Substance: METHYLPREDNISOLONE
  28. PROMETHAZINE [Concomitant]
     Active Substance: PROMETHAZINE HYDROCHLORIDE

REACTIONS (5)
  - Discomfort [Not Recovered/Not Resolved]
  - Sleep disorder due to a general medical condition [Not Recovered/Not Resolved]
  - Rash [Not Recovered/Not Resolved]
  - Eye irritation [Not Recovered/Not Resolved]
  - Drug hypersensitivity [Unknown]

NARRATIVE: CASE EVENT DATE: 20230101
